FAERS Safety Report 19821764 (Version 1)
Quarter: 2021Q3

REPORT INFORMATION
  Report Type: Spontaneous
  Country: US (occurrence: US)
  Receive Date: 20210913
  Receipt Date: 20210913
  Transmission Date: 20211014
  Serious: Yes (Death)
  Sender: FDA-Public Use
  Company Number: None

PATIENT
  Age: 58 Year
  Sex: Female
  Weight: 105.48 kg

DRUGS (13)
  1. ONDANSETRON [Suspect]
     Active Substance: ONDANSETRON
     Indication: BREAST CANCER FEMALE
     Dosage: ?          OTHER FREQUENCY:EVERY 7 DAYS;?
     Route: 042
     Dates: start: 20210513, end: 20210913
  2. HYDRALAZINE [Concomitant]
     Active Substance: HYDRALAZINE HYDROCHLORIDE
  3. BASAGLAR 100UNIT/ML [Concomitant]
  4. ALBUTEROL 108MCG [Concomitant]
     Active Substance: ALBUTEROL
  5. OMEPRAZOLE 20MG [Concomitant]
     Active Substance: OMEPRAZOLE
  6. DIPHENHYDRAMINE 50MG/ML [Concomitant]
     Active Substance: DIPHENHYDRAMINE
  7. DEXAMETHASONE 10MG/ML [Concomitant]
     Active Substance: DEXAMETHASONE SODIUM PHOSPHATE
  8. SIMVASTATIN 10MG [Concomitant]
     Active Substance: SIMVASTATIN
  9. GABAPENTIN 300MG [Concomitant]
     Active Substance: GABAPENTIN
  10. LOSARTAN 100MG [Concomitant]
     Active Substance: LOSARTAN
  11. CALCIUM ACETATE 667MG [Concomitant]
     Active Substance: CALCIUM ACETATE
  12. HUMALOG KWIKPEN 100UNIT/ML [Concomitant]
  13. CLONIDINE 0.1MG [Concomitant]
     Active Substance: CLONIDINE

REACTIONS (1)
  - Death [None]

NARRATIVE: CASE EVENT DATE: 20210913
